FAERS Safety Report 16774990 (Version 5)
Quarter: 2021Q3

REPORT INFORMATION
  Report Type: Spontaneous
  Country: US (occurrence: US)
  Receive Date: 20190905
  Receipt Date: 20210818
  Transmission Date: 20211014
  Serious: Yes (Other)
  Sender: FDA-Public Use
  Company Number: US-GILEAD-2019-0426510

PATIENT
  Age: 27 Year
  Sex: Female
  Weight: 158.73 kg

DRUGS (17)
  1. ASPIRINE [Concomitant]
     Active Substance: ASPIRIN
  2. MAALOX [CALCIUM CARBONATE] [Concomitant]
     Active Substance: CALCIUM CARBONATE
  3. MYLANTA [CALCIUM CARBONATE] [Concomitant]
     Active Substance: CALCIUM CARBONATE
  4. RIOPAN [MAGALDRATE] [Concomitant]
     Active Substance: MAGALDRATE
  5. IBUPROFEN. [Concomitant]
     Active Substance: IBUPROFEN
  6. GENVOYA [Concomitant]
     Active Substance: COBICISTAT\ELVITEGRAVIR\EMTRICITABINE\TENOFOVIR ALAFENAMIDE FUMARATE
  7. RANITIDINE. [Concomitant]
     Active Substance: RANITIDINE
  8. XANAX [Concomitant]
     Active Substance: ALPRAZOLAM
  9. ATIVAN [Concomitant]
     Active Substance: LORAZEPAM
  10. VIREAD [Suspect]
     Active Substance: TENOFOVIR DISOPROXIL FUMARATE
     Indication: HIV INFECTION
     Dosage: UNK
     Route: 048
     Dates: start: 200110
  11. PENICILLIN NOS [Concomitant]
     Active Substance: PENICILLIN
  12. VALIUM [Concomitant]
     Active Substance: DIAZEPAM
  13. NAPROXEN. [Concomitant]
     Active Substance: NAPROXEN
  14. STRIBILD [Suspect]
     Active Substance: COBICISTAT\ELVITEGRAVIR\EMTRICITABINE\TENOFOVIR DISOPROXIL FUMARATE
     Indication: HIV INFECTION
     Dosage: UNK
     Route: 048
     Dates: start: 2013, end: 2017
  15. STRIBILD [Suspect]
     Active Substance: COBICISTAT\ELVITEGRAVIR\EMTRICITABINE\TENOFOVIR DISOPROXIL FUMARATE
     Dosage: UNK
     Route: 048
     Dates: start: 201303, end: 2015
  16. ACETAMINOPHEN. [Concomitant]
     Active Substance: ACETAMINOPHEN
  17. TYLENOL [Concomitant]
     Active Substance: ACETAMINOPHEN

REACTIONS (14)
  - Osteonecrosis [Unknown]
  - Emotional distress [Not Recovered/Not Resolved]
  - Clavicle fracture [Recovered/Resolved]
  - Bone loss [Not Recovered/Not Resolved]
  - Renal injury [Unknown]
  - Depression [Not Recovered/Not Resolved]
  - Anxiety [Unknown]
  - Skeletal injury [Unknown]
  - Pain [Not Recovered/Not Resolved]
  - Tooth loss [Recovered/Resolved]
  - Anhedonia [Unknown]
  - Multiple fractures [Recovered/Resolved]
  - Bone density decreased [Not Recovered/Not Resolved]
  - Economic problem [Not Recovered/Not Resolved]

NARRATIVE: CASE EVENT DATE: 2013
